FAERS Safety Report 6220414-7 (Version None)
Quarter: 2009Q2

REPORT INFORMATION
  Report Type: 
  Country: None (occurrence: None)
  Receive Date: 20090610
  Receipt Date: 20090529
  Transmission Date: 20091009
  Serious: Yes (Hospitalization, Other)
  Sender: FDA-Public Use
  Company Number: DE-PFIZER INC-2008005690

PATIENT
  Age: 8 Year

DRUGS (3)
  1. GENOTROPIN [Suspect]
     Indication: FOETAL GROWTH RETARDATION
     Dosage: 0.4 MG, 1X/DAY
     Route: 058
     Dates: start: 20060201, end: 20060401
  2. GENOTROPIN [Suspect]
     Indication: BODY HEIGHT BELOW NORMAL
     Dosage: 0.6 MG, 1X/DAY
     Route: 058
     Dates: start: 20060701, end: 20061001
  3. GENOTROPIN [Suspect]
     Dosage: 0.7 MG, 1X/DAY
     Route: 058
     Dates: start: 20081201, end: 20090301

REACTIONS (7)
  - BONE ATROPHY [None]
  - GLUCOSE TOLERANCE IMPAIRED [None]
  - NEOPLASM RECURRENCE [None]
  - NERVOUS SYSTEM DISORDER [None]
  - NEUROFIBROMA [None]
  - NEUROFIBROMATOSIS [None]
  - PAIN IN EXTREMITY [None]
